FAERS Safety Report 7767041-8 (Version None)
Quarter: 2011Q3

REPORT INFORMATION
  Report Type: 
  Country: None (occurrence: None)
  Receive Date: 20110922
  Receipt Date: 20110218
  Transmission Date: 20111222
  Serious: No
  Sender: FDA-Public Use
  Company Number: GB-ASTRAZENECA-2011SE09564

PATIENT
  Age: 32 Year
  Sex: Female

DRUGS (3)
  1. SEROQUEL [Suspect]
     Indication: BIPOLAR DISORDER
     Route: 048
     Dates: start: 20010101, end: 20070101
  2. SEROQUEL [Suspect]
     Dosage: DAILY
     Route: 048
     Dates: start: 20070101, end: 20110106
  3. SEROQUEL [Suspect]
     Route: 048

REACTIONS (1)
  - DERMATITIS BULLOUS [None]
